FAERS Safety Report 9806775 (Version 1)
Quarter: 2014Q1

REPORT INFORMATION
  Report Type: Spontaneous
  Country: US (occurrence: US)
  Receive Date: 20140109
  Receipt Date: 20140109
  Transmission Date: 20141002
  Serious: No
  Sender: FDA-Public Use
  Company Number: US-ABBVIE-13P-163-1070127-00

PATIENT
  Age: 67 Year
  Sex: Female

DRUGS (2)
  1. VICODIN [Suspect]
     Indication: SYSTEMIC LUPUS ERYTHEMATOSUS
  2. VICODIN [Suspect]
     Indication: PAIN

REACTIONS (1)
  - Drug ineffective [Unknown]
